FAERS Safety Report 9971592 (Version 1)
Quarter: 2014Q1

REPORT INFORMATION
  Report Type: Spontaneous
  Country: US (occurrence: None)
  Receive Date: 20140127
  Receipt Date: 20140127
  Transmission Date: 20141002
  Serious: Yes (Hospitalization)
  Sender: FDA-Public Use
  Company Number: 1210896

PATIENT
  Age: 48 Year
  Sex: Male

DRUGS (5)
  1. ACTILYSE [Suspect]
     Indication: MYOCARDIAL INFARCTION
  2. HEPARIN [Suspect]
     Indication: MYOCARDIAL INFARCTION
     Dosage: 5000 UNIT BOLUS FOLLOWED BY A 1000 UNIT PER HOUR, INTRAVENOUS (NOT OTHERWISE SPECIFIED)
     Route: 042
  3. ASPIRIN (ASPIRIN) [Concomitant]
  4. NITROGLYCERIN (NITROGLYCERIN) [Concomitant]
  5. MORPHINE (MORPHINE SULFATE) [Concomitant]

REACTIONS (1)
  - Spinal epidural haematoma [None]
